FAERS Safety Report 11741645 (Version 1)
Quarter: 2015Q4

REPORT INFORMATION
  Report Type: Spontaneous
  Country: DE (occurrence: DE)
  Receive Date: 20151116
  Receipt Date: 20151116
  Transmission Date: 20160304
  Serious: Yes (Death, Life-Threatening)
  Sender: FDA-Public Use
  Company Number: DE-BAYER-2015-467569

PATIENT
  Age: 80 Year
  Sex: Female

DRUGS (12)
  1. GLIMEPIRIDE W/PIOGLITAZONE [Concomitant]
     Active Substance: GLIMEPIRIDE\PIOGLITAZONE HYDROCHLORIDE
  2. PIRITRAMIDE [Concomitant]
     Active Substance: PIRITRAMIDE
  3. TORASEMID [Concomitant]
     Active Substance: TORSEMIDE
  4. LORAZEPAM. [Concomitant]
     Active Substance: LORAZEPAM
  5. ADALAT [Suspect]
     Active Substance: NIFEDIPINE
     Indication: HYPERTENSION
     Dosage: 10 MG, UNK
     Route: 048
     Dates: start: 20150809
  6. METFORMIN [Concomitant]
     Active Substance: METFORMIN HYDROCHLORIDE
  7. OXYCODON [Concomitant]
     Active Substance: OXYCODONE
  8. PARACETAMOL [Concomitant]
     Active Substance: ACETAMINOPHEN
  9. SIMVASTATIN. [Concomitant]
     Active Substance: SIMVASTATIN
  10. PANTOPRAZOLE [Concomitant]
     Active Substance: PANTOPRAZOLE SODIUM
  11. SITAGLIPTIN [Concomitant]
     Active Substance: SITAGLIPTIN
  12. NALOXON [Concomitant]

REACTIONS (6)
  - Circulatory collapse [Fatal]
  - Urticaria [Fatal]
  - Lactic acidosis [Fatal]
  - Hypertensive crisis [None]
  - Anaphylactic shock [Fatal]
  - Hyperglycaemia [None]

NARRATIVE: CASE EVENT DATE: 20150809
